FAERS Safety Report 6664777-7 (Version None)
Quarter: 2010Q1

REPORT INFORMATION
  Report Type: 
  Country: None (occurrence: None)
  Receive Date: 20100330
  Receipt Date: 20100315
  Transmission Date: 20100710
  Serious: Yes (Other)
  Sender: FDA-Public Use
  Company Number: 008815

PATIENT
  Sex: Male
  Weight: 1 kg

DRUGS (3)
  1. VIMPAT [Suspect]
     Dosage: 150 MG BID, TRANSPLACENTAL
     Route: 064
     Dates: start: 20090301
  2. KEPPRA [Suspect]
     Dosage: 1500MG BID TRANSPLACENTAL
     Route: 064
     Dates: start: 20070101
  3. MIRTAZAPINE [Concomitant]

REACTIONS (4)
  - CAESAREAN SECTION [None]
  - MATERNAL DRUGS AFFECTING FOETUS [None]
  - PREMATURE BABY [None]
  - SMALL FOR DATES BABY [None]
